FAERS Safety Report 6726097-1 (Version None)
Quarter: 2010Q2

REPORT INFORMATION
  Report Type: 
  Country: None (occurrence: None)
  Receive Date: 20100514
  Receipt Date: 20100505
  Transmission Date: 20101027
  Serious: Yes (Death, Other)
  Sender: FDA-Public Use
  Company Number: US-PFIZER INC-2010042385

PATIENT

DRUGS (1)
  1. CHANTIX [Suspect]

REACTIONS (1)
  - DEATH [None]
